FAERS Safety Report 7355324-5 (Version None)
Quarter: 2011Q1

REPORT INFORMATION
  Report Type: 
  Country: None (occurrence: None)
  Receive Date: 20110316
  Receipt Date: 20110310
  Transmission Date: 20110831
  Serious: Yes (Hospitalization)
  Sender: FDA-Public Use
  Company Number: GB-TEVA-270990ISR

PATIENT
  Sex: Female

DRUGS (3)
  1. INSULIN [Suspect]
     Indication: GESTATIONAL DIABETES
     Dosage: 8 DF
  2. METFORMIN HCL [Suspect]
     Indication: GESTATIONAL DIABETES
     Route: 064
  3. BETAMETHASONE [Suspect]
     Indication: PRENATAL CARE

REACTIONS (4)
  - HYPOGLYCAEMIA NEONATAL [None]
  - DRUG EXPOSURE DURING PREGNANCY [None]
  - MATERNAL DRUGS AFFECTING FOETUS [None]
  - CAESAREAN SECTION [None]
